FAERS Safety Report 8800072 (Version 3)
Quarter: 2013Q3

REPORT INFORMATION
  Report Type: Spontaneous
  Country: US (occurrence: US)
  Receive Date: 20120921
  Receipt Date: 20130910
  Transmission Date: 20140515
  Serious: Yes (Life-Threatening, Hospitalization, Other)
  Sender: FDA-Public Use
  Company Number: US-AMGEN-USASP2012050713

PATIENT
  Age: 17 Year
  Sex: Female
  Weight: 72.9 kg

DRUGS (2)
  1. NEUPOGEN [Suspect]
     Indication: HAEMATOPOIETIC STEM CELL MOBILISATION
     Dosage: 720 MUG, ONE TIME DOSE (10 MICROGRAM/KG)
     Route: 058
     Dates: start: 20120810, end: 20120810
  2. FERROUS SULFATE [Concomitant]
     Indication: IRON DEFICIENCY ANAEMIA
     Dosage: 325 MG, TID
     Route: 048
     Dates: start: 20120712

REACTIONS (13)
  - Unresponsive to stimuli [Recovered/Resolved]
  - Blood pressure immeasurable [Recovered/Resolved]
  - Confusional state [Recovered/Resolved]
  - Throat tightness [Recovered/Resolved]
  - Dizziness [Recovered/Resolved]
  - Hyperhidrosis [Recovered/Resolved]
  - Abdominal pain [Recovered/Resolved]
  - Tachycardia [Recovered/Resolved]
  - Hypotension [Recovered/Resolved]
  - Dyspnoea [Recovered/Resolved]
  - Diarrhoea [Recovered/Resolved]
  - Anaphylactic reaction [Recovered/Resolved]
  - Hypersensitivity [Recovered/Resolved]
